FAERS Safety Report 18449224 (Version 1)
Quarter: 2020Q4

REPORT INFORMATION
  Report Type: Other
  Country: CA (occurrence: CA)
  Receive Date: 20201102
  Receipt Date: 20201102
  Transmission Date: 20210114
  Serious: Yes (Other)
  Sender: FDA-Public Use
  Company Number: CA-CELLTRION INC.-2020CA029785

PATIENT

DRUGS (25)
  1. ARAVA [Suspect]
     Active Substance: LEFLUNOMIDE
     Indication: RHEUMATOID ARTHRITIS
     Dosage: 20 MILLIGRAM, 1 EVERY 1 WEEKS
     Route: 048
  2. DETROL LA [Concomitant]
     Active Substance: TOLTERODINE TARTRATE
     Dosage: 4 MILLIGRAM, 1 EVERY 1 DAYS
     Route: 065
  3. ESOMEPRAZOLE MAGNESIUM TRIHYDRATE [Concomitant]
     Active Substance: ESOMEPRAZOLE MAGNESIUM
     Dosage: UNK, 1 EVERY 1 DAYS
     Route: 048
  4. ENBREL [Suspect]
     Active Substance: ETANERCEPT
     Indication: RHEUMATOID ARTHRITIS
     Dosage: 50 MILLIGRAM, 1 EVERY 1 WEEKS
     Route: 065
  5. RITUXIMAB (UNKNOWN) [Suspect]
     Active Substance: RITUXIMAB
     Indication: RHEUMATOID ARTHRITIS
     Dosage: 2 GRAM
     Route: 042
  6. DETROL LA [Concomitant]
     Active Substance: TOLTERODINE TARTRATE
     Dosage: 4 MILLIGRAM, 1 EVERY 1 WEEKS
     Route: 065
  7. HYDROXYCHLOROQUINE [Concomitant]
     Active Substance: HYDROXYCHLOROQUINE
     Indication: RHEUMATOID ARTHRITIS
     Route: 065
  8. LYRICA [Concomitant]
     Active Substance: PREGABALIN
     Dosage: 300 MILLIGRAM, 1 EVERY 1 DAYS
     Route: 065
  9. PREDNISONE. [Concomitant]
     Active Substance: PREDNISONE
     Dosage: 30 MILLIGRAM, 1 EVERY 1 WEEKS
     Route: 048
  10. GOLD [Suspect]
     Active Substance: GOLD
     Indication: RHEUMATOID ARTHRITIS
     Route: 065
  11. HUMIRA [Suspect]
     Active Substance: ADALIMUMAB
     Indication: RHEUMATOID ARTHRITIS
     Dosage: 40 MILLIGRAM, CYCLICAL
     Route: 058
  12. NAPROXEN. [Concomitant]
     Active Substance: NAPROXEN
     Dosage: UNK, 1 EVERY 1 WEEKS
     Route: 048
  13. ORENCIA [Concomitant]
     Active Substance: ABATACEPT
     Indication: RHEUMATOID ARTHRITIS
     Route: 042
  14. APO-LEFLUNOMIDE [Suspect]
     Active Substance: LEFLUNOMIDE
     Indication: RHEUMATOID ARTHRITIS
     Dosage: 20 MILLIGRAM, 1 EVERY 1 WEEKS
     Route: 065
  15. LEFLUNOMIDE. [Suspect]
     Active Substance: LEFLUNOMIDE
     Indication: RHEUMATOID ARTHRITIS
     Dosage: 20 MILLIGRAM, 1 EVERY 1 WEEKS
     Route: 065
  16. XELJANZ [Concomitant]
     Active Substance: TOFACITINIB CITRATE
     Indication: RHEUMATOID ARTHRITIS
     Dosage: 5 MILLIGRAM, 2 EVERY 1 DAYS
     Route: 048
  17. ETANERCEPT [Suspect]
     Active Substance: ETANERCEPT
     Indication: RHEUMATOID ARTHRITIS
     Dosage: 50 MILLIGRAM, 1/WEEK
     Route: 065
  18. REMICADE [Suspect]
     Active Substance: INFLIXIMAB
     Indication: RHEUMATOID ARTHRITIS
     Dosage: 4 MG/KG, CYCLICAL
     Route: 042
  19. PREDNISONE. [Concomitant]
     Active Substance: PREDNISONE
     Dosage: 30 MILLIGRAM, 1 EVERY 1 DAYS
     Route: 048
  20. ESOMEPRAZOLE MAGNESIUM TRIHYDRATE [Concomitant]
     Active Substance: ESOMEPRAZOLE MAGNESIUM
     Dosage: UNK, 1 EVERY 1 WEEKS
     Route: 048
  21. ESOMEPRAZOLE MAGNESIUM TRIHYDRATE;NAPROXEN [Concomitant]
     Active Substance: ESOMEPRAZOLE MAGNESIUM\NAPROXEN
     Dosage: UNK, 1 EVERY 1 DAYS
     Route: 048
  22. HYDROXYCHLOROQUINE SULFATE. [Concomitant]
     Active Substance: HYDROXYCHLOROQUINE SULFATE
     Indication: RHEUMATOID ARTHRITIS
     Route: 065
  23. HYDROXYCHLOROQUINE SULFATE. [Concomitant]
     Active Substance: HYDROXYCHLOROQUINE SULFATE
     Indication: RHEUMATOID ARTHRITIS
     Route: 065
  24. METHOTREXATE. [Suspect]
     Active Substance: METHOTREXATE
     Indication: RHEUMATOID ARTHRITIS
     Dosage: 2.5 MILLIGRAM,1 EVERY 1 WEEKS
     Route: 048
  25. NAPROXEN. [Concomitant]
     Active Substance: NAPROXEN
     Route: 048

REACTIONS (11)
  - Arthralgia [Not Recovered/Not Resolved]
  - Diarrhoea [Not Recovered/Not Resolved]
  - Gastrointestinal disorder [Not Recovered/Not Resolved]
  - Drug ineffective [Not Recovered/Not Resolved]
  - Joint swelling [Not Recovered/Not Resolved]
  - Alopecia [Not Recovered/Not Resolved]
  - Sensitivity to weather change [Not Recovered/Not Resolved]
  - Therapy non-responder [Not Recovered/Not Resolved]
  - Overdose [Unknown]
  - Rheumatoid arthritis [Not Recovered/Not Resolved]
  - Rash [Not Recovered/Not Resolved]
